FAERS Safety Report 17170489 (Version 1)
Quarter: 2019Q4

REPORT INFORMATION
  Report Type: Report from Study
  Country: US (occurrence: US)
  Receive Date: 20191218
  Receipt Date: 20191218
  Transmission Date: 20200122
  Serious: Yes (Other)
  Sender: FDA-Public Use
  Company Number: US-MYLANLABS-2019M1101726

PATIENT
  Sex: Female
  Weight: 98 kg

DRUGS (1)
  1. GLATIRAMER ACETATE INJECTION [Suspect]
     Active Substance: GLATIRAMER ACETATE
     Indication: RELAPSING-REMITTING MULTIPLE SCLEROSIS
     Dosage: 40 MILLIGRAM, 3XW

REACTIONS (6)
  - Maternal exposure during pregnancy [Recovered/Resolved]
  - Headache [Unknown]
  - Abortion spontaneous [Recovered/Resolved]
  - Nausea [Unknown]
  - Injection site haemorrhage [Unknown]
  - Feeling abnormal [Unknown]
